FAERS Safety Report 4455837-X (Version None)
Quarter: 2004Q3

REPORT INFORMATION
  Report Type: 
  Country: None (occurrence: None)
  Receive Date: 20040920
  Receipt Date: 20040909
  Transmission Date: 20050211
  Serious: Yes (Hospitalization)
  Sender: FDA-Public Use
  Company Number: 040818-0000410

PATIENT
  Age: 50 Year
  Sex: Female
  Weight: 65.7716 kg

DRUGS (17)
  1. PANHEMATIN [Suspect]
     Indication: PORPHYRIA ACUTE
     Dosage: 150 MG;BID;IV
     Route: 042
     Dates: start: 20040601, end: 20040601
  2. PANHEMATIN [Suspect]
  3. ALBUMIN (HUMAN) [Suspect]
     Indication: PORPHYRIA ACUTE
     Dosage: 5 ML;IV
     Route: 042
     Dates: start: 20040601, end: 20040601
  4. ALBUMIN (HUMAN) [Suspect]
  5. ALBUMIN (HUMAN) [Suspect]
  6. ALBUMIN (HUMAN) [Suspect]
  7. DEXTROSE INFUSION FLUID [Concomitant]
  8. HEPARIN [Concomitant]
  9. DARVOCET-N 100 [Concomitant]
  10. KYTRIL [Concomitant]
  11. TENEX [Concomitant]
  12. FOSAMAX [Concomitant]
  13. WARFARIN SODIUM [Concomitant]
  14. CALCIUM CARBONATE [Concomitant]
  15. SENOKOT [Concomitant]
  16. COLACE [Concomitant]
  17. ALBUMIN (HUMAN) [Suspect]

REACTIONS (5)
  - BACTERIAL SEPSIS [None]
  - CATHETER RELATED COMPLICATION [None]
  - DISSEMINATED INTRAVASCULAR COAGULATION [None]
  - HYPOTENSION [None]
  - STENOTROPHOMONAS INFECTION [None]
